FAERS Safety Report 14318787 (Version 2)
Quarter: 2018Q1

REPORT INFORMATION
  Report Type: Report from Study
  Country: TR (occurrence: TR)
  Receive Date: 20171222
  Receipt Date: 20180131
  Transmission Date: 20180509
  Serious: Yes (Death, Other)
  Sender: FDA-Public Use
  Company Number: TR-GILEAD-2017-0311395

PATIENT
  Age: 56 Year
  Sex: Female

DRUGS (2)
  1. RIBAVIRIN. [Concomitant]
     Active Substance: RIBAVIRIN
     Indication: HEPATITIS C VIRUS TEST POSITIVE
  2. LEDIPASVIR/SOFOSBUVIR [Suspect]
     Active Substance: LEDIPASVIR\SOFOSBUVIR
     Indication: CHRONIC HEPATITIS C
     Route: 065

REACTIONS (1)
  - Death [Fatal]
